FAERS Safety Report 5652636-8 (Version None)
Quarter: 2008Q1

REPORT INFORMATION
  Report Type: 
  Country: None (occurrence: None)
  Receive Date: 20080131
  Receipt Date: 20071010
  Transmission Date: 20080703
  Serious: No
  Sender: FDA-Public Use
  Company Number: US200710004241

PATIENT
  Age: 45 Year
  Sex: Female

DRUGS (3)
  1. BYETTA [Suspect]
     Indication: TYPE 2 DIABETES MELLITUS
     Dosage: 5 MG, 2/D, SUBCUTANEOUS ; 10 MG, 2/D, SUBCUTANEOUS
     Route: 058
     Dates: start: 20070801, end: 20070901
  2. BYETTA [Suspect]
     Indication: TYPE 2 DIABETES MELLITUS
     Dosage: 5 MG, 2/D, SUBCUTANEOUS ; 10 MG, 2/D, SUBCUTANEOUS
     Route: 058
     Dates: start: 20070901
  3. GLUCOVANCE [Concomitant]

REACTIONS (1)
  - ABDOMINAL PAIN UPPER [None]
